FAERS Safety Report 15263408 (Version 2)
Quarter: 2018Q3

REPORT INFORMATION
  Report Type: Report from Study
  Country: US (occurrence: US)
  Receive Date: 20180810
  Receipt Date: 20180827
  Transmission Date: 20181010
  Serious: Yes (Hospitalization, Other)
  Sender: FDA-Public Use
  Company Number: US-ROCHE-2160012

PATIENT
  Age: 68 Year
  Sex: Male

DRUGS (8)
  1. CLARINEX [Concomitant]
     Active Substance: DESLORATADINE
  2. VEMURAFENIB. [Suspect]
     Active Substance: VEMURAFENIB
     Indication: THYROID CANCER
     Route: 065
  3. XYZAL [Concomitant]
     Active Substance: LEVOCETIRIZINE DIHYDROCHLORIDE
  4. HYDROCORTISONE. [Concomitant]
     Active Substance: HYDROCORTISONE
     Route: 065
  5. TAGAMET [Concomitant]
     Active Substance: CIMETIDINE
  6. ATEZOLIZUMAB. [Suspect]
     Active Substance: ATEZOLIZUMAB
     Indication: THYROID CANCER
     Route: 042
  7. BEVACIZUMAB. [Suspect]
     Active Substance: BEVACIZUMAB
     Indication: THYROID CANCER
     Route: 042
  8. COBIMETINIB. [Suspect]
     Active Substance: COBIMETINIB
     Indication: THYROID CANCER
     Route: 048

REACTIONS (3)
  - Pain [Unknown]
  - Rash maculo-papular [Unknown]
  - Dyspnoea [Unknown]

NARRATIVE: CASE EVENT DATE: 20180416
